FAERS Safety Report 20333331 (Version 1)
Quarter: 2022Q1

REPORT INFORMATION
  Report Type: Spontaneous
  Country: US (occurrence: US)
  Receive Date: 20220113
  Receipt Date: 20220113
  Transmission Date: 20220423
  Serious: Yes (Life-Threatening, Hospitalization)
  Sender: FDA-Public Use
  Company Number: US-MYLANLABS-2022M1002741

PATIENT
  Age: 15 Year
  Sex: Male

DRUGS (4)
  1. PREDNISONE [Suspect]
     Active Substance: PREDNISONE
     Indication: Infectious mononucleosis
     Dosage: ADMINISTERED FOR 10 DAYS
     Route: 065
  2. PREDNISONE [Suspect]
     Active Substance: PREDNISONE
     Dosage: 60 MILLIGRAM, QD, ADMINISTERED FOR 5 DAYS
     Route: 065
  3. PREDNISONE [Suspect]
     Active Substance: PREDNISONE
     Dosage: 40 MILLIGRAM, QD, ADMINISTERED FOR 2 DAYS
     Route: 065
  4. PREDNISONE [Suspect]
     Active Substance: PREDNISONE
     Dosage: 20 MILLIGRAM, QD
     Route: 065

REACTIONS (9)
  - Pleural effusion [Recovering/Resolving]
  - Septic pulmonary embolism [Recovering/Resolving]
  - Extradural abscess [Recovering/Resolving]
  - Pneumonia [Recovering/Resolving]
  - Septic shock [Recovering/Resolving]
  - Sinusitis [Recovering/Resolving]
  - Empyema [Recovering/Resolving]
  - Streptococcal bacteraemia [Recovering/Resolving]
  - Fusobacterium infection [Recovering/Resolving]
